FAERS Safety Report 9736654 (Version 1)
Quarter: 2013Q4

REPORT INFORMATION
  Report Type: Spontaneous
  Country: US (occurrence: US)
  Receive Date: 20131206
  Receipt Date: 20131206
  Transmission Date: 20140711
  Serious: No
  Sender: FDA-Public Use
  Company Number: US-GILEAD-2009-0022748

PATIENT
  Sex: Female

DRUGS (13)
  1. LETAIRIS [Suspect]
     Indication: PULMONARY ARTERIAL HYPERTENSION
     Route: 048
     Dates: start: 20090121
  2. COUMADIN [Concomitant]
  3. FUROSEMIDE [Concomitant]
  4. NASONEX [Concomitant]
  5. PULMICORT [Concomitant]
  6. ATROVENT [Concomitant]
  7. IRON [Concomitant]
  8. TYLENOL [Concomitant]
  9. NEXIUM [Concomitant]
  10. ZOLOFT [Concomitant]
  11. KLOR-CON [Concomitant]
  12. SYNTHROID [Concomitant]
  13. CALTRATE + VIT D [Concomitant]

REACTIONS (3)
  - Asthenia [Not Recovered/Not Resolved]
  - Fatigue [Not Recovered/Not Resolved]
  - Haemoglobin decreased [Not Recovered/Not Resolved]
